FAERS Safety Report 9283391 (Version 1)
Quarter: 2013Q2

REPORT INFORMATION
  Report Type: Spontaneous
  Country: GB (occurrence: GB)
  Receive Date: 20130510
  Receipt Date: 20130510
  Transmission Date: 20140414
  Serious: Yes (Other)
  Sender: FDA-Public Use
  Company Number: PHFR2012GB002677

PATIENT
  Age: 48 Year
  Sex: Female

DRUGS (8)
  1. GILENYA [Suspect]
     Indication: RELAPSING-REMITTING MULTIPLE SCLEROSIS
     Dosage: 0.5 MG, DAILY
     Route: 048
     Dates: start: 20120327
  2. PREGABALIN [Concomitant]
     Dosage: UNK
  3. BACLOFEN [Concomitant]
  4. FLUOXETINE [Concomitant]
  5. NORTRIPTYLINE [Concomitant]
  6. CO-CODAMOL [Concomitant]
  7. CODEINE PHOSPHATE [Concomitant]
  8. PARACETAMOL [Concomitant]

REACTIONS (3)
  - Ocular myasthenia [Not Recovered/Not Resolved]
  - Eyelid ptosis [Recovering/Resolving]
  - Lymphocyte count decreased [Not Recovered/Not Resolved]
